FAERS Safety Report 7595430-3 (Version None)
Quarter: 2011Q3

REPORT INFORMATION
  Report Type: 
  Country: None (occurrence: None)
  Receive Date: 20110707
  Receipt Date: 20110628
  Transmission Date: 20111222
  Serious: Yes (Other)
  Sender: FDA-Public Use
  Company Number: RO-ROCHE-760066

PATIENT
  Sex: Male
  Weight: 100 kg

DRUGS (10)
  1. GLUCOSE [Concomitant]
     Dates: start: 20110211
  2. GLUCOSE [Concomitant]
     Dates: start: 20110210, end: 20110210
  3. SODIUM CHLORIDE [Concomitant]
     Dates: start: 20110210, end: 20110210
  4. SALBUTAMOL AEROSOL [Concomitant]
     Dates: start: 20110211
  5. METAMIZOL [Concomitant]
     Dosage: METAMIZOL SODIC
     Dates: start: 20110210
  6. BROMHEXIN [Concomitant]
     Dates: start: 20110211
  7. DICLOFENACUM [Concomitant]
     Dates: start: 20110210
  8. OSELTAMIVIR [Suspect]
     Indication: INFLUENZA
     Dosage: DATE OF LAST DOSE PRIOR TO SAE: 13 FEBRUARY 2011
     Route: 042
     Dates: start: 20110211
  9. ACETAMINOPHEN [Concomitant]
     Dates: start: 20110210
  10. SALBUTAMOL AEROSOL [Concomitant]
     Dosage: SALBUTAMOL AEROSOL SPRAY
     Dates: start: 20110210

REACTIONS (1)
  - SINUS BRADYCARDIA [None]
